FAERS Safety Report 24201240 (Version 1)
Quarter: 2024Q3

REPORT INFORMATION
  Report Type: Spontaneous
  Country: FR (occurrence: FR)
  Receive Date: 20240812
  Receipt Date: 20240812
  Transmission Date: 20241016
  Serious: Yes (Death, Hospitalization)
  Sender: NOVARTIS
  Company Number: None

PATIENT
  Age: 57 Year
  Sex: Male
  Weight: 76 kg

DRUGS (8)
  1. GLIVEC [Suspect]
     Active Substance: IMATINIB MESYLATE
     Indication: Gastrointestinal stromal tumour
     Dosage: 400 MG, QD
     Route: 048
     Dates: start: 20211201, end: 20220323
  2. GLIVEC [Suspect]
     Active Substance: IMATINIB MESYLATE
     Dosage: 400 MG, QD
     Route: 048
     Dates: start: 20220501, end: 20230801
  3. GLIVEC [Suspect]
     Active Substance: IMATINIB MESYLATE
     Dosage: 800 MG, QD
     Route: 048
     Dates: start: 20230802, end: 20231115
  4. GLIVEC [Suspect]
     Active Substance: IMATINIB MESYLATE
     Dosage: 400 MG, QD
     Route: 048
     Dates: start: 20240710, end: 20240723
  5. POTASSIUM CHLORIDE [Concomitant]
     Active Substance: POTASSIUM CHLORIDE
     Indication: Hypokalaemia
     Dosage: 1 DOSAGE FORM, QD (COMPRIM? ? LIB?RATION PROLONG?E)
     Route: 048
  6. PANCRELIPASE [Concomitant]
     Active Substance: PANCRELIPASE
     Indication: Pancreatic failure
     Dosage: 3 DOSAGE FORM, Q8H (25 000 U, MICROGRANULES GASTRO-R?SISTANTS EN G?LULE)
     Route: 048
  7. TAMSULOSIN HYDROCHLORIDE [Concomitant]
     Active Substance: TAMSULOSIN HYDROCHLORIDE
     Indication: Urinary tract disorder
     Dosage: 0.4 MG, QD
     Route: 048
  8. HUMALOG [Concomitant]
     Active Substance: INSULIN LISPRO
     Indication: Diabetes mellitus
     Dosage: 1 DOSAGE FORM
     Route: 058

REACTIONS (2)
  - Haemolytic anaemia [Fatal]
  - Cross sensitivity reaction [Recovered/Resolved]

NARRATIVE: CASE EVENT DATE: 20231108
